FAERS Safety Report 8811263 (Version 1)
Quarter: 2012Q4

REPORT INFORMATION
  Report Type: Spontaneous
  Country: US (occurrence: None)
  Receive Date: 20120925
  Receipt Date: 20120925
  Transmission Date: 20130627
  Serious: Yes (Other)
  Sender: FDA-Public Use
  Company Number: None

PATIENT
  Sex: Female
  Weight: 72.58 kg

DRUGS (2)
  1. IMITREX [Suspect]
     Indication: MIGRAINE
     Dosage: Imitrex prn po or subq
     Route: 048
     Dates: start: 2000
  2. MAXALT [Suspect]
     Dosage: maxalt prn PO
     Route: 048
     Dates: start: 2001

REACTIONS (4)
  - Drug hypersensitivity [None]
  - Cardiac arrest [None]
  - Dyspnoea [None]
  - Swollen tongue [None]
